FAERS Safety Report 4336285-X (Version None)
Quarter: 2004Q2

REPORT INFORMATION
  Report Type: 
  Country: None (occurrence: None)
  Receive Date: 20040409
  Receipt Date: 20040409
  Transmission Date: 20050107
  Serious: No
  Sender: FDA-Public Use
  Company Number: None

PATIENT
  Age: 87 Year
  Sex: Female

DRUGS (2)
  1. NAPROXEN [Suspect]
     Dosage: 500 MG BID
  2. ASPIRIN [Suspect]
     Dosage: 81 MG QD

REACTIONS (1)
  - HAEMATOCHEZIA [None]
